FAERS Safety Report 22132342 (Version 1)
Quarter: 2023Q1

REPORT INFORMATION
  Report Type: Spontaneous
  Country: US (occurrence: US)
  Receive Date: 20230323
  Receipt Date: 20230323
  Transmission Date: 20230418
  Serious: No
  Sender: FDA-Public Use
  Company Number: US-BRISTOL-MYERS SQUIBB COMPANY-2023-042026

PATIENT
  Age: 70 Year
  Sex: Female
  Weight: 47.63 kg

DRUGS (1)
  1. POMALYST [Suspect]
     Active Substance: POMALIDOMIDE
     Indication: Plasma cell leukaemia
     Dosage: FREQ: QD 21 D ON 7D OFF
     Route: 048

REACTIONS (1)
  - Off label use [Unknown]
